FAERS Safety Report 11440457 (Version 2)
Quarter: 2015Q3

REPORT INFORMATION
  Report Type: Report from Study
  Country: BR (occurrence: BR)
  Receive Date: 20150901
  Receipt Date: 20150916
  Transmission Date: 20151125
  Serious: Yes (Other)
  Sender: FDA-Public Use
  Company Number: PHHY2015BR103827

PATIENT
  Sex: Female
  Weight: 48 kg

DRUGS (1)
  1. EXELON PATCH [Suspect]
     Active Substance: RIVASTIGMINE
     Indication: FALL
     Dosage: PATCH 5 (CM2)
     Route: 062
     Dates: start: 20150822

REACTIONS (4)
  - Stress [Not Recovered/Not Resolved]
  - Aggression [Not Recovered/Not Resolved]
  - Product use issue [Unknown]
  - Condition aggravated [Not Recovered/Not Resolved]
